FAERS Safety Report 6662724-5 (Version None)
Quarter: 2010Q2

REPORT INFORMATION
  Report Type: 
  Country: None (occurrence: None)
  Receive Date: 20100401
  Receipt Date: 20100322
  Transmission Date: 20101027
  Serious: No
  Sender: FDA-Public Use
  Company Number: US-BIOGENIDEC-2010BI009995

PATIENT
  Age: 49 Year
  Sex: Male

DRUGS (2)
  1. TYSABRI [Suspect]
     Indication: MULTIPLE SCLEROSIS
     Route: 042
     Dates: start: 20091201
  2. LOVASTATIN [Concomitant]
     Indication: BLOOD CHOLESTEROL INCREASED
     Dates: start: 20010101

REACTIONS (7)
  - ASTHENIA [None]
  - EYE DISORDER [None]
  - FATIGUE [None]
  - HEADACHE [None]
  - LOW DENSITY LIPOPROTEIN INCREASED [None]
  - MULTIPLE SCLEROSIS [None]
  - PAIN [None]
